FAERS Safety Report 22175110 (Version 5)
Quarter: 2024Q4

REPORT INFORMATION
  Report Type: Spontaneous
  Country: FR (occurrence: FR)
  Receive Date: 20230405
  Receipt Date: 20241104
  Transmission Date: 20250115
  Serious: Yes (Other)
  Sender: AUROBINDO
  Company Number: FR-PFIZER INC-202300124496

PATIENT
  Age: 11 Year
  Sex: Male

DRUGS (15)
  1. VORICONAZOLE [Suspect]
     Active Substance: VORICONAZOLE
     Indication: Fusarium infection
     Dosage: UNK
     Route: 048
  2. VORICONAZOLE [Suspect]
     Active Substance: VORICONAZOLE
     Dosage: UNK
     Route: 061
  3. TERBINAFINE [Suspect]
     Active Substance: TERBINAFINE\TERBINAFINE HYDROCHLORIDE
     Indication: Fusarium infection
     Dosage: UNK
     Route: 065
  4. AMPHOTERICIN B [Suspect]
     Active Substance: AMPHOTERICIN B
     Indication: Fusarium infection
     Dosage: UNK
     Route: 061
  5. AMPHOTERICIN B [Suspect]
     Active Substance: AMPHOTERICIN B
     Dosage: UNK
     Route: 003
  6. AMPHOTERICIN B [Suspect]
     Active Substance: AMPHOTERICIN B
     Dosage: UNK
     Route: 042
  7. AMPHOTERICIN B [Suspect]
     Active Substance: AMPHOTERICIN B
     Indication: Fusarium infection
     Dosage: UNK
     Route: 042
  8. CHLORHEXIDINE [Concomitant]
     Active Substance: CHLORHEXIDINE
     Indication: Fusarium infection
     Dosage: UNK
     Route: 061
  9. GENTIAN VIOLET [Concomitant]
     Active Substance: GENTIAN VIOLET
     Indication: Fusarium infection
     Dosage: UNK
     Route: 061
  10. IMIQUIMOD [Concomitant]
     Active Substance: IMIQUIMOD
     Indication: Fusarium infection
     Dosage: UNK
     Route: 061
  11. METHYLROSANILINIUM CHLORIDE [Concomitant]
     Indication: Fusarium infection
     Dosage: UNK
     Route: 065
  12. NYSTATIN [Concomitant]
     Active Substance: NYSTATIN
     Indication: Fusarium infection
     Dosage: UNK
     Route: 061
  13. POLIHEXANIDE HYDROCHLORIDE [Concomitant]
     Active Substance: POLIHEXANIDE HYDROCHLORIDE
     Indication: Fusarium infection
     Dosage: 0.02 %
     Route: 061
  14. POSACONAZOLE [Concomitant]
     Active Substance: POSACONAZOLE
     Indication: Fusarium infection
     Dosage: UNK
     Route: 065
  15. SILVER SULFADIAZINE [Concomitant]
     Active Substance: SILVER SULFADIAZINE
     Indication: Fusarium infection
     Dosage: UNK
     Route: 061

REACTIONS (4)
  - Hallucination [Unknown]
  - Intentional product use issue [Unknown]
  - Off label use [Unknown]
  - Therapeutic product effect incomplete [Unknown]
